FAERS Safety Report 18132361 (Version 1)
Quarter: 2020Q3

REPORT INFORMATION
  Report Type: Spontaneous
  Country: IR (occurrence: IR)
  Receive Date: 20200811
  Receipt Date: 20200811
  Transmission Date: 20201103
  Serious: Yes (Other)
  Sender: FDA-Public Use
  Company Number: IR-EDENBRIDGE PHARMACEUTICALS, LLC-IR-2020EDE000029

PATIENT

DRUGS (2)
  1. PREDNISOLONE SODIUM PHOSPHATE. [Suspect]
     Active Substance: PREDNISOLONE SODIUM PHOSPHATE
     Indication: PEMPHIGUS
  2. AZATHIOPRINE. [Suspect]
     Active Substance: AZATHIOPRINE
     Indication: PEMPHIGUS

REACTIONS (5)
  - Osteopenia [Unknown]
  - Hirsutism [Unknown]
  - Acne [Unknown]
  - Cushingoid [Unknown]
  - Skin striae [Unknown]
